FAERS Safety Report 5654874-7 (Version None)
Quarter: 2008Q1

REPORT INFORMATION
  Report Type: 
  Country: None (occurrence: None)
  Receive Date: 20080307
  Receipt Date: 20070910
  Transmission Date: 20080703
  Serious: No
  Sender: FDA-Public Use
  Company Number: A0671384A

PATIENT
  Sex: Female

DRUGS (2)
  1. REQUIP [Suspect]
     Indication: RESTLESS LEGS SYNDROME
     Dates: start: 20070501
  2. EFFEXOR [Concomitant]

REACTIONS (2)
  - DYSKINESIA [None]
  - THERAPEUTIC RESPONSE UNEXPECTED [None]
